FAERS Safety Report 7650798-4 (Version None)
Quarter: 2011Q3

REPORT INFORMATION
  Report Type: 
  Country: None (occurrence: None)
  Receive Date: 20110802
  Receipt Date: 20110726
  Transmission Date: 20111222
  Serious: Yes (Hospitalization)
  Sender: FDA-Public Use
  Company Number: JP-MERCK-1107USA03615

PATIENT
  Age: 59 Year
  Sex: Male

DRUGS (5)
  1. JANUVIA [Suspect]
     Indication: TYPE 2 DIABETES MELLITUS
     Route: 048
     Dates: start: 20110317, end: 20110617
  2. AMARYL [Concomitant]
     Route: 065
     Dates: end: 20110617
  3. PRAVASTATIN SODIUM [Concomitant]
     Route: 065
     Dates: end: 20110617
  4. AMLODIN OD [Concomitant]
     Route: 065
     Dates: end: 20110617
  5. CANDESARTAN CILEXETIL [Concomitant]
     Route: 065
     Dates: end: 20110617

REACTIONS (1)
  - ACUTE MYOCARDIAL INFARCTION [None]
